FAERS Safety Report 10862322 (Version 1)
Quarter: 2015Q1

REPORT INFORMATION
  Report Type: Report from Study
  Country: US (occurrence: US)
  Receive Date: 20150224
  Receipt Date: 20150224
  Transmission Date: 20150721
  Serious: Yes (Other)
  Sender: FDA-Public Use
  Company Number: US-BAYER-2015-026184

PATIENT
  Age: 68 Year
  Sex: Male
  Weight: 79 kg

DRUGS (16)
  1. RADIUM-223 DICHLORIDE [Suspect]
     Active Substance: RADIUM RA-223 DICHLORIDE
     Indication: PROSTATE CANCER METASTATIC
     Dosage: 50KBQ/KG
     Route: 042
     Dates: start: 20140730, end: 20140730
  2. ADDITIONAL STUDY MEDICATION [Suspect]
     Active Substance: UNSPECIFIED INGREDIENT
     Indication: PROSTATE CANCER METASTATIC
     Dosage: UNKNOWN DOSAGE EVERY 3 WEEKS (60MG/M2 OR 75MG/M2)
     Route: 042
  3. ADDITIONAL STUDY MEDICATION [Suspect]
     Active Substance: UNSPECIFIED INGREDIENT
     Indication: PROSTATE CANCER METASTATIC
     Dosage: UNKNOWN DOSAGE EVERY 3 WEEKS (60MG/M2 OR 75MG/M2)
     Route: 042
     Dates: start: 20140820, end: 20140820
  4. PREDNISONE. [Concomitant]
     Active Substance: PREDNISONE
     Dosage: UNK
     Route: 048
     Dates: start: 20141114
  5. RADIUM-223 DICHLORIDE [Suspect]
     Active Substance: RADIUM RA-223 DICHLORIDE
     Indication: PROSTATE CANCER METASTATIC
     Dosage: 50KBQ/KG; 5 INJECTIONS PRIOR TO ADVERSE EVENT
     Route: 042
     Dates: start: 20140212, end: 20140212
  6. RADIUM-223 DICHLORIDE [Suspect]
     Active Substance: RADIUM RA-223 DICHLORIDE
     Indication: PROSTATE CANCER METASTATIC
     Dosage: 50KBQ/KG
     Route: 042
  7. RADIUM-223 DICHLORIDE [Suspect]
     Active Substance: RADIUM RA-223 DICHLORIDE
     Indication: PROSTATE CANCER METASTATIC
     Dosage: 50KBQ/KG
     Route: 042
  8. ADDITIONAL STUDY MEDICATION [Suspect]
     Active Substance: UNSPECIFIED INGREDIENT
     Indication: PROSTATE CANCER METASTATIC
     Dosage: UNKNOWN DOSAGE EVERY 3 WEEKS (60MG/M2 OR 75MG/M2)
     Route: 042
  9. ADDITIONAL STUDY MEDICATION [Suspect]
     Active Substance: UNSPECIFIED INGREDIENT
     Indication: PROSTATE CANCER METASTATIC
     Dosage: UNKNOWN DOSAGE EVERY 3 WEEKS (60MG/M2 OR 75MG/M2)
     Route: 042
  10. ADDITIONAL STUDY MEDICATION [Suspect]
     Active Substance: UNSPECIFIED INGREDIENT
     Indication: PROSTATE CANCER METASTATIC
     Dosage: UNKNOWN DOSAGE EVERY 3 WEEKS (60MG/M2 OR 75MG/M2)
     Route: 042
  11. ADDITIONAL STUDY MEDICATION [Suspect]
     Active Substance: UNSPECIFIED INGREDIENT
     Indication: PROSTATE CANCER METASTATIC
     Dosage: UNKNOWN DOSAGE EVERY 3 WEEKS (60MG/M2 OR 75MG/M2)
     Route: 042
  12. ADDITIONAL STUDY MEDICATION [Suspect]
     Active Substance: UNSPECIFIED INGREDIENT
     Indication: PROSTATE CANCER METASTATIC
     Dosage: UNKNOWN DOSAGE EVERY 3 WEEKS (60MG/M2 OR 75MG/M2)
     Route: 042
  13. ADDITIONAL STUDY MEDICATION [Suspect]
     Active Substance: UNSPECIFIED INGREDIENT
     Indication: PROSTATE CANCER METASTATIC
     Dosage: UNKNOWN DOSAGE EVERY 3 WEEKS (60MG/M2 OR 75MG/M2)
     Route: 042
  14. RADIUM-223 DICHLORIDE [Suspect]
     Active Substance: RADIUM RA-223 DICHLORIDE
     Indication: PROSTATE CANCER METASTATIC
     Dosage: 50KBQ/KG
     Route: 042
  15. ADDITIONAL STUDY MEDICATION [Suspect]
     Active Substance: UNSPECIFIED INGREDIENT
     Indication: PROSTATE CANCER METASTATIC
     Dosage: UNKNOWN DOSAGE EVERY 3 WEEKS (60MG/M2 OR 75MG/M2)
     Route: 042
     Dates: start: 20150212, end: 20150212
  16. ADDITIONAL STUDY MEDICATION [Suspect]
     Active Substance: UNSPECIFIED INGREDIENT
     Indication: PROSTATE CANCER METASTATIC
     Dosage: UNKNOWN DOSAGE EVERY 3 WEEKS (60MG/M2 OR 75MG/M2)
     Route: 042

REACTIONS (1)
  - Anaemia [Recovered/Resolved]

NARRATIVE: CASE EVENT DATE: 20150203
